FAERS Safety Report 7342574-7 (Version None)
Quarter: 2011Q1

REPORT INFORMATION
  Report Type: 
  Country: None (occurrence: None)
  Receive Date: 20110310
  Receipt Date: 20110225
  Transmission Date: 20110831
  Serious: Yes (Other)
  Sender: FDA-Public Use
  Company Number: US-BAYER-2011-018727

PATIENT
  Sex: Female

DRUGS (3)
  1. ZIAC [Concomitant]
  2. INTERFERON BETA-1B [Suspect]
     Indication: MULTIPLE SCLEROSIS
     Dosage: 2 MIU, QOD
     Route: 058
     Dates: start: 20110218
  3. IBUPROFEN [Concomitant]

REACTIONS (8)
  - TREMOR [None]
  - HEAD DISCOMFORT [None]
  - BLOOD PRESSURE INCREASED [None]
  - INSOMNIA [None]
  - DYSPNOEA [None]
  - DYSKINESIA [None]
  - HEADACHE [None]
  - MUSCULOSKELETAL STIFFNESS [None]
